FAERS Safety Report 10691541 (Version 2)
Quarter: 2015Q1

REPORT INFORMATION
  Report Type: Report from Study
  Country: US (occurrence: US)
  Receive Date: 20150105
  Receipt Date: 20150105
  Transmission Date: 20150720
  Serious: Yes (Hospitalization)
  Sender: FDA-Public Use
  Company Number: US-ACTELION-A-US2014-103606

PATIENT
  Age: 74 Year
  Sex: Female

DRUGS (2)
  1. TRACLEER [Suspect]
     Active Substance: BOSENTAN\BOSENTAN MONOHYDRATE
     Indication: PULMONARY ARTERIAL HYPERTENSION
     Dosage: 125 MG, BID
     Route: 048
     Dates: start: 2009
  2. TRACLEER [Suspect]
     Active Substance: BOSENTAN\BOSENTAN MONOHYDRATE
     Dosage: 125 MG, UNK
     Route: 048
     Dates: start: 20081107

REACTIONS (8)
  - Lung disorder [Unknown]
  - Blood gases abnormal [Recovered/Resolved]
  - Scar [Not Recovered/Not Resolved]
  - Dyspnoea [Unknown]
  - Joint swelling [Recovering/Resolving]
  - Musculoskeletal stiffness [Not Recovered/Not Resolved]
  - PCO2 increased [Recovered/Resolved]
  - Localised infection [Recovered/Resolved]

NARRATIVE: CASE EVENT DATE: 2014
